FAERS Safety Report 9592729 (Version 1)
Quarter: 2013Q3

REPORT INFORMATION
  Report Type: Spontaneous
  Country: US (occurrence: None)
  Receive Date: 20130916
  Receipt Date: 20130916
  Transmission Date: 20140515
  Serious: Yes (Other)
  Sender: FDA-Public Use
  Company Number: FK201301453

PATIENT
  Age: 61 Year
  Sex: Male

DRUGS (3)
  1. CISPLATIN (MANUFACTURER UNKNOWN){CISPLATIN)(CISPLATIN) [Suspect]
     Indication: PRODUCT USED FOR UNKNOWN INDICATION
  2. ETOPOSIDE (MANUFACTURER UNKNOWN) [Suspect]
     Indication: PRODUCT USED FOR UNKNOWN INDICATION
  3. ROLAPITANT [Suspect]
     Indication: PROPHYLAXIS OF NAUSEA AND VOMITING

REACTIONS (1)
  - Febrile neutropenia [None]
